FAERS Safety Report 5818988-0 (Version None)
Quarter: 2008Q3

REPORT INFORMATION
  Report Type: 
  Country: None (occurrence: None)
  Receive Date: 20080721
  Receipt Date: 20080721
  Transmission Date: 20090109
  Serious: Yes (Other)
  Sender: FDA-Public Use
  Company Number: None

PATIENT
  Age: 74 Year
  Sex: Female
  Weight: 68.0396 kg

DRUGS (2)
  1. PREVACID DELAYED RELEASE CAPSULE 30 MG. TAP PHARMACEUTICAL PRODUCTS, I [Suspect]
     Indication: DYSPEPSIA
     Dosage: 1 CAPSUL DAILY PO
     Route: 048
     Dates: start: 20080701, end: 20080713
  2. PREVACID DELAYED RELEASE CAPSULE 30 MG. TAP PHARMACEUTICAL PRODUCTS, I [Suspect]
     Indication: GASTROOESOPHAGEAL REFLUX DISEASE
     Dosage: 1 CAPSUL DAILY PO
     Route: 048
     Dates: start: 20080701, end: 20080713

REACTIONS (2)
  - RASH GENERALISED [None]
  - RASH PRURITIC [None]
